FAERS Safety Report 8901016 (Version 1)
Quarter: 2012Q4

REPORT INFORMATION
  Report Type: 
  Country: MX (occurrence: MX)
  Receive Date: 20121109
  Receipt Date: 20121109
  Transmission Date: 20130627
  Serious: Yes (Death, Hospitalization, Other)
  Sender: FDA-Public Use
  Company Number: MX-PFIZER INC-2012278631

PATIENT
  Age: 58 Year
  Sex: Female

DRUGS (1)
  1. CELEBREX [Suspect]
     Indication: ARTHRITIS
     Dosage: 200 mg
     Route: 048
     Dates: start: 201206

REACTIONS (3)
  - Hepatic cancer [Fatal]
  - Metastasis [Not Recovered/Not Resolved]
  - Drug ineffective [Unknown]
